FAERS Safety Report 8359614-9 (Version None)
Quarter: 2012Q2

REPORT INFORMATION
  Report Type: 
  Country: None (occurrence: None)
  Receive Date: 20120515
  Receipt Date: 20120509
  Transmission Date: 20120825
  Serious: Yes (Life-Threatening, Congenital Anomaly, Other)
  Sender: FDA-Public Use
  Company Number: US-PFIZER INC-2007095398

PATIENT
  Sex: Female
  Weight: 3 kg

DRUGS (3)
  1. ZOLOFT [Suspect]
     Dosage: 50 MG, UNK
     Route: 064
  2. VICODIN [Concomitant]
     Indication: PARONYCHIA
  3. VICODIN [Concomitant]
     Indication: INGROWING NAIL
     Route: 064
     Dates: start: 20050701

REACTIONS (19)
  - FOETAL EXPOSURE DURING PREGNANCY [None]
  - DYSPHAGIA [None]
  - HYPERTENSION [None]
  - CONGENITAL ANOMALY [None]
  - DOUBLE OUTLET RIGHT VENTRICLE [None]
  - AORTIC DISORDER [None]
  - TRANSPOSITION OF THE GREAT VESSELS [None]
  - CYANOSIS [None]
  - PSYCHOMOTOR SKILLS IMPAIRED [None]
  - DISCOMFORT [None]
  - BODY TEMPERATURE INCREASED [None]
  - INFLUENZA LIKE ILLNESS [None]
  - LARYNGEAL STENOSIS [None]
  - PULMONARY VALVE STENOSIS [None]
  - SPEECH DISORDER DEVELOPMENTAL [None]
  - HYPOPLASTIC RIGHT HEART SYNDROME [None]
  - VENTRICULAR SEPTAL DEFECT [None]
  - DYSPNOEA [None]
  - IRRITABILITY [None]
